FAERS Safety Report 12057421 (Version 2)
Quarter: 2016Q1

REPORT INFORMATION
  Report Type: Spontaneous
  Country: FR (occurrence: FR)
  Receive Date: 20160209
  Receipt Date: 20160215
  Transmission Date: 20160526
  Serious: Yes (Hospitalization, Other)
  Sender: FDA-Public Use
  Company Number: FR-PFIZER INC-2016061831

PATIENT
  Age: 21 Year
  Sex: Male

DRUGS (4)
  1. DALACINE [Suspect]
     Active Substance: CLINDAMYCIN HYDROCHLORIDE
     Indication: OSTEITIS
     Dosage: 600 MG, 3X/DAY
     Route: 042
     Dates: start: 20141205, end: 20141224
  2. DALACINE [Suspect]
     Active Substance: CLINDAMYCIN HYDROCHLORIDE
     Indication: SUPERINFECTION
  3. PIPERACILLIN AND TAZOBACTAM [Suspect]
     Active Substance: PIPERACILLIN SODIUM\TAZOBACTAM SODIUM
     Indication: SUPERINFECTION
  4. PIPERACILLIN AND TAZOBACTAM [Suspect]
     Active Substance: PIPERACILLIN SODIUM\TAZOBACTAM SODIUM
     Indication: OSTEITIS
     Dosage: 4 G, 3X/DAY
     Route: 042
     Dates: start: 20141205, end: 20141224

REACTIONS (1)
  - Drug reaction with eosinophilia and systemic symptoms [Recovered/Resolved]

NARRATIVE: CASE EVENT DATE: 20141224
